FAERS Safety Report 17005399 (Version 1)
Quarter: 2019Q4

REPORT INFORMATION
  Report Type: Spontaneous
  Country: CN (occurrence: CN)
  Receive Date: 20191107
  Receipt Date: 20191107
  Transmission Date: 20200122
  Serious: Yes (Other)
  Sender: FDA-Public Use
  Company Number: CN-PFIZER INC-2019476881

PATIENT

DRUGS (2)
  1. SULPERAZON [Suspect]
     Active Substance: CEFOPERAZONE SODIUM\SULBACTAM SODIUM
     Indication: ANTI-INFECTIVE THERAPY
     Dosage: UNK
     Route: 041
     Dates: start: 20191019
  2. DIFLUCAN [Suspect]
     Active Substance: FLUCONAZOLE
     Indication: ANTI-INFECTIVE THERAPY
     Dosage: UNK
     Route: 041
     Dates: start: 20191019

REACTIONS (8)
  - Mouth haemorrhage [Unknown]
  - Dyskinesia [Unknown]
  - Oral mucosa erosion [Unknown]
  - Scab [Unknown]
  - Epistaxis [Unknown]
  - Dizziness [Recovering/Resolving]
  - Fatigue [Recovering/Resolving]
  - Nasal cavity packing [Unknown]

NARRATIVE: CASE EVENT DATE: 20191019
